FAERS Safety Report 15458268 (Version 1)
Quarter: 2018Q3

REPORT INFORMATION
  Report Type: Spontaneous
  Country: US (occurrence: US)
  Receive Date: 20180929
  Receipt Date: 20180929
  Transmission Date: 20181010
  Serious: Yes (Other)
  Sender: FDA-Public Use
  Company Number: None

PATIENT
  Age: 67 Year
  Sex: Female
  Weight: 94.5 kg

DRUGS (3)
  1. HYALURONIDASE [Suspect]
     Active Substance: HYALURONIDASE
     Indication: IMMUNODEFICIENCY COMMON VARIABLE
     Route: 058
     Dates: start: 20180327, end: 20180327
  2. HYQVIA [Suspect]
     Active Substance: HUMAN IMMUNOGLOBULIN G\HYALURONIDASE RECOMBINANT HUMAN
     Indication: IMMUNODEFICIENCY COMMON VARIABLE
     Route: 058
     Dates: start: 20180327, end: 20180327
  3. HYALURONIDASE [Suspect]
     Active Substance: HYALURONIDASE
     Indication: HYPOGAMMAGLOBULINAEMIA

REACTIONS (5)
  - Abdominal pain lower [None]
  - Abdominal injury [None]
  - Injection site pain [None]
  - Abdominal tenderness [None]
  - Abdominal distension [None]

NARRATIVE: CASE EVENT DATE: 20180426
